FAERS Safety Report 5302168-1 (Version None)
Quarter: 2007Q2

REPORT INFORMATION
  Report Type: 
  Country: None (occurrence: None)
  Receive Date: 20070419
  Receipt Date: 20070418
  Transmission Date: 20071010
  Serious: Yes (Hospitalization)
  Sender: FDA-Public Use
  Company Number: GB-SP-2007-01234

PATIENT
  Age: 78 Year
  Sex: Male

DRUGS (1)
  1. IMMUCYST [Suspect]
     Indication: BLADDER CANCER
     Route: 043
     Dates: start: 20070306, end: 20070403

REACTIONS (5)
  - BOVINE TUBERCULOSIS [None]
  - CHILLS [None]
  - LETHARGY [None]
  - MALAISE [None]
  - NIGHT SWEATS [None]
